FAERS Safety Report 10131327 (Version 1)
Quarter: 2014Q2

REPORT INFORMATION
  Report Type: Spontaneous
  Country: US (occurrence: US)
  Receive Date: 20140428
  Receipt Date: 20140428
  Transmission Date: 20141212
  Serious: No
  Sender: FDA-Public Use
  Company Number: US-PFIZER INC-2014116491

PATIENT
  Age: 77 Year
  Sex: Female
  Weight: 58.96 kg

DRUGS (6)
  1. EFFEXOR XR [Suspect]
     Indication: INSOMNIA
     Dosage: 37.5 MG, 1X/DAY
     Route: 048
     Dates: start: 20140323, end: 20140424
  2. EFFEXOR XR [Suspect]
     Indication: MOOD ALTERED
  3. ATACAND [Concomitant]
     Dosage: UNK
  4. BABY ASPIRIN [Concomitant]
     Dosage: UNK
  5. ACTONEL [Concomitant]
     Dosage: UNK
  6. CELEBREX [Concomitant]
     Dosage: UNK

REACTIONS (4)
  - Malaise [Not Recovered/Not Resolved]
  - Pollakiuria [Not Recovered/Not Resolved]
  - Feeling abnormal [Not Recovered/Not Resolved]
  - Chills [Not Recovered/Not Resolved]
